FAERS Safety Report 8817964 (Version 6)
Quarter: 2013Q3

REPORT INFORMATION
  Report Type: Spontaneous
  Country: US (occurrence: US)
  Receive Date: 20121002
  Receipt Date: 20130808
  Transmission Date: 20140515
  Serious: No
  Sender: FDA-Public Use
  Company Number: US-009507513-1209USA012014

PATIENT
  Age: 69 Year
  Sex: Male

DRUGS (3)
  1. PEGINTRON [Suspect]
     Indication: HEPATITIS C
     Dosage: REDIPEN
     Dates: start: 20120908
  2. RIBAVIRIN [Suspect]
     Indication: HEPATITIS C
     Dosage: UNK
     Dates: start: 20120908
  3. VICTRELIS [Suspect]
     Indication: HEPATITIS C
     Dosage: UNK
     Dates: start: 20121012

REACTIONS (25)
  - Hyperhidrosis [Unknown]
  - Influenza [Unknown]
  - Skin odour abnormal [Unknown]
  - Dysgeusia [Unknown]
  - Increased upper airway secretion [Unknown]
  - Pyrexia [Unknown]
  - White blood cell count decreased [Unknown]
  - Injection site discolouration [Unknown]
  - Rash [Unknown]
  - Eye pain [Unknown]
  - Vision blurred [Unknown]
  - Fatigue [Unknown]
  - Asthenia [Unknown]
  - Dizziness [Unknown]
  - Breath odour [Unknown]
  - Blood disorder [Unknown]
  - Thrombocytopenia [Unknown]
  - White blood cell count decreased [Unknown]
  - Red blood cell count decreased [Unknown]
  - Asthenia [Unknown]
  - Dehydration [Unknown]
  - Epistaxis [Unknown]
  - Pruritus [Unknown]
  - Urine odour abnormal [Unknown]
  - Pollakiuria [Unknown]
